FAERS Safety Report 19756365 (Version 1)
Quarter: 2021Q3

REPORT INFORMATION
  Report Type: Spontaneous
  Country: FR (occurrence: FR)
  Receive Date: 20210827
  Receipt Date: 20210827
  Transmission Date: 20211014
  Serious: Yes (Other)
  Sender: FDA-Public Use
  Company Number: FR-ASTRAZENECA-2021A700080

PATIENT
  Age: 38 Year
  Sex: Male

DRUGS (1)
  1. INEXIUM [Suspect]
     Active Substance: ESOMEPRAZOLE
     Indication: GASTROOESOPHAGEAL REFLUX DISEASE
     Dosage: UNKNOWN
     Route: 048
     Dates: end: 202101

REACTIONS (2)
  - Enterocolitis [Unknown]
  - Constipation [Unknown]
